FAERS Safety Report 24674783 (Version 1)
Quarter: 2024Q4

REPORT INFORMATION
  Report Type: Report from Study
  Country: US (occurrence: US)
  Receive Date: 20241128
  Receipt Date: 20241128
  Transmission Date: 20250114
  Serious: Yes (Other)
  Sender: ABBVIE
  Company Number: US-ABBVIE-6022000

PATIENT
  Sex: Female

DRUGS (2)
  1. RINVOQ [Suspect]
     Active Substance: UPADACITINIB
     Indication: Psoriatic arthropathy
     Dosage: EXTENDED RELEASE?FORM STRENGTH: 15MG
     Route: 048
  2. RINVOQ [Suspect]
     Active Substance: UPADACITINIB
     Indication: Psoriatic arthropathy
     Dosage: EXTENDED RELEASE?FORM STRENGTH: 15MG
     Route: 048
     Dates: start: 20240715

REACTIONS (2)
  - Neck surgery [Recovering/Resolving]
  - Staphylococcal infection [Recovering/Resolving]
